FAERS Safety Report 6691007-2 (Version None)
Quarter: 2010Q2

REPORT INFORMATION
  Report Type: 
  Country: None (occurrence: None)
  Receive Date: 20100421
  Receipt Date: 20100419
  Transmission Date: 20101027
  Serious: Yes (Other)
  Sender: FDA-Public Use
  Company Number: US-MERCK-1004USA00547

PATIENT
  Age: 7 Year
  Sex: Male

DRUGS (3)
  1. SINGULAIR [Suspect]
     Route: 048
     Dates: start: 20060101, end: 20070101
  2. ZYRTEC [Concomitant]
     Route: 065
  3. COUGH, COLD, AND FLU THERAPIES (UNSPECIFIED) [Concomitant]
     Route: 065

REACTIONS (5)
  - AFFECTIVE DISORDER [None]
  - ANGER [None]
  - FRUSTRATION [None]
  - HEADACHE [None]
  - SUICIDAL IDEATION [None]
